FAERS Safety Report 8912545 (Version 2)
Quarter: 2012Q4

REPORT INFORMATION
  Report Type: 
  Country: US (occurrence: US)
  Receive Date: 20121115
  Receipt Date: 20121207
  Transmission Date: 20130627
  Serious: Yes (Other)
  Sender: FDA-Public Use
  Company Number: US-ASTRAZENECA-2012SE84875

PATIENT
  Age: 74 Year
  Sex: Male

DRUGS (2)
  1. TOPROL XL [Suspect]
     Route: 048
  2. CRESTOR [Suspect]
     Route: 048

REACTIONS (2)
  - Neoplasm malignant [Unknown]
  - Skin lesion [Unknown]
